FAERS Safety Report 6577728-0 (Version None)
Quarter: 2010Q1

REPORT INFORMATION
  Report Type: 
  Country: None (occurrence: None)
  Receive Date: 20100211
  Receipt Date: 20100204
  Transmission Date: 20100710
  Serious: Yes (Other)
  Sender: FDA-Public Use
  Company Number: CA-BAYER-201013080NA

PATIENT
  Age: 63 Year
  Sex: Female

DRUGS (2)
  1. AVELOX [Suspect]
     Indication: IMMUNOSUPPRESSION
     Route: 048
     Dates: start: 20100101
  2. ANTIBIOTICS [Concomitant]
     Indication: IMMUNOSUPPRESSION

REACTIONS (2)
  - CARBON DIOXIDE ABNORMAL [None]
  - STATUS ASTHMATICUS [None]
